FAERS Safety Report 5279355-4 (Version None)
Quarter: 2007Q1

REPORT INFORMATION
  Report Type: 
  Country: None (occurrence: None)
  Receive Date: 20070328
  Receipt Date: 20060221
  Transmission Date: 20070707
  Serious: No
  Sender: FDA-Public Use
  Company Number: US-AMGEN-US169758

PATIENT
  Sex: Female

DRUGS (2)
  1. NEUPOGEN [Suspect]
     Indication: CHEMOTHERAPY
     Dates: start: 20040801
  2. NEULASTA [Suspect]
     Indication: CHEMOTHERAPY
     Dates: start: 20040101, end: 20040101

REACTIONS (2)
  - DRUG INEFFECTIVE [None]
  - NEURALGIA [None]
